FAERS Safety Report 11791435 (Version 3)
Quarter: 2015Q4

REPORT INFORMATION
  Report Type: Spontaneous
  Country: BR (occurrence: BR)
  Receive Date: 20151201
  Receipt Date: 20151217
  Transmission Date: 20160305
  Serious: Yes (Other)
  Sender: FDA-Public Use
  Company Number: BR-JNJFOC-20151200204

PATIENT
  Sex: Female

DRUGS (2)
  1. METHOTREXATE [Concomitant]
     Active Substance: METHOTREXATE
     Route: 065
  2. SIMPONI [Suspect]
     Active Substance: GOLIMUMAB
     Indication: RHEUMATOID ARTHRITIS
     Route: 058

REACTIONS (8)
  - Arthritis [Unknown]
  - Dizziness [Unknown]
  - Depression [Unknown]
  - Hypersensitivity [Recovering/Resolving]
  - Pain in extremity [Unknown]
  - Rheumatoid arthritis [Unknown]
  - Rhinorrhoea [Unknown]
  - Diplopia [Unknown]

NARRATIVE: CASE EVENT DATE: 2015
